FAERS Safety Report 19174954 (Version 1)
Quarter: 2021Q2

REPORT INFORMATION
  Report Type: Spontaneous
  Country: US (occurrence: US)
  Receive Date: 20210423
  Receipt Date: 20210423
  Transmission Date: 20210717
  Serious: No
  Sender: FDA-Public Use
  Company Number: US-BAUSCH-BL-2021-010959

PATIENT

DRUGS (1)
  1. NASALCROM [Suspect]
     Active Substance: CROMOLYN SODIUM
     Indication: RHINITIS ALLERGIC
     Route: 045

REACTIONS (1)
  - Epistaxis [Unknown]
